FAERS Safety Report 21290395 (Version 3)
Quarter: 2023Q1

REPORT INFORMATION
  Report Type: Report from Study
  Country: US (occurrence: US)
  Receive Date: 20220902
  Receipt Date: 20230126
  Transmission Date: 20230418
  Serious: Yes (Other)
  Sender: FDA-Public Use
  Company Number: US-TAKEDA-2022TUS060554

PATIENT
  Sex: Female

DRUGS (1)
  1. HUMAN IMMUNOGLOBULIN G [Suspect]
     Active Substance: HUMAN IMMUNOGLOBULIN G
     Indication: Immunodeficiency common variable
     Dosage: UNK
     Route: 042

REACTIONS (6)
  - Internal haemorrhage [Unknown]
  - Systemic lupus erythematosus [Unknown]
  - Pulmonary embolism [Unknown]
  - Ovarian mass [Unknown]
  - Memory impairment [Unknown]
  - Malaise [Unknown]
